FAERS Safety Report 23925090 (Version 1)
Quarter: 2024Q2

REPORT INFORMATION
  Report Type: Spontaneous
  Country: DE (occurrence: DE)
  Receive Date: 20240531
  Receipt Date: 20240531
  Transmission Date: 20240716
  Serious: Yes (Other)
  Sender: FDA-Public Use
  Company Number: DE-PFM-2024-02218

PATIENT
  Sex: Female

DRUGS (2)
  1. BRAFTOVI [Suspect]
     Active Substance: ENCORAFENIB
     Indication: Colorectal cancer
     Dosage: UNK
     Route: 065
  2. CETUXIMAB [Suspect]
     Active Substance: CETUXIMAB
     Indication: Colorectal cancer
     Dosage: UNK
     Route: 065

REACTIONS (12)
  - Melanocytic naevus [Unknown]
  - Osteoarthritis [Unknown]
  - Palmar-plantar erythrodysaesthesia syndrome [Unknown]
  - Skin exfoliation [Unknown]
  - Heart rate increased [Unknown]
  - Eye inflammation [Unknown]
  - Dry eye [Unknown]
  - Visual impairment [Unknown]
  - Alopecia [Unknown]
  - Dermatitis [Unknown]
  - Sleep disorder [Unknown]
  - Arthralgia [Unknown]
